FAERS Safety Report 10077208 (Version 1)
Quarter: 2014Q2

REPORT INFORMATION
  Report Type: Spontaneous
  Country: US (occurrence: US)
  Receive Date: 20140414
  Receipt Date: 20140414
  Transmission Date: 20141212
  Serious: Yes (Other)
  Sender: FDA-Public Use
  Company Number: US-BANPHARM-20130903

PATIENT
  Age: 62 Year
  Sex: Female
  Weight: 90.7 kg

DRUGS (5)
  1. NAPROXEN SODIUM 220MG [Suspect]
     Indication: ARTHRITIS
     Dosage: 2 DF, QD,
     Route: 048
     Dates: start: 20130217, end: 20130217
  2. NAPROXEN SODIUM 220MG [Suspect]
     Indication: ARTHRITIS
     Dosage: 1 DF, BID,
     Route: 048
     Dates: start: 20130218, end: 20130218
  3. NAPROXEN SODIUM 220MG [Suspect]
     Indication: ARTHRITIS
     Dosage: 2 DF, QD,
     Route: 048
     Dates: start: 20130219, end: 20130219
  4. COZAAR [Concomitant]
  5. HYDROCHLOROTHIAZIDE [Concomitant]

REACTIONS (3)
  - Haematochezia [Not Recovered/Not Resolved]
  - Faeces discoloured [Not Recovered/Not Resolved]
  - Drug ineffective [Not Recovered/Not Resolved]
